FAERS Safety Report 14668236 (Version 1)
Quarter: 2018Q1

REPORT INFORMATION
  Report Type: Spontaneous
  Country: US (occurrence: US)
  Receive Date: 20180321
  Receipt Date: 20180321
  Transmission Date: 20180509
  Serious: Yes (Disabling)
  Sender: FDA-Public Use
  Company Number: None

PATIENT
  Age: 39 Year
  Sex: Female
  Weight: 74.84 kg

DRUGS (4)
  1. VITRON C 65MG [Concomitant]
  2. MIRENA [Suspect]
     Active Substance: LEVONORGESTREL
  3. REMICADE 10MCG/KG EVERY 4 WEEKS [Concomitant]
  4. MINOCYCLINE 100MG DAILY [Concomitant]

REACTIONS (4)
  - Polyarthritis [None]
  - Autoimmune hepatitis [None]
  - Rheumatoid arthritis [None]
  - Arthralgia [None]

NARRATIVE: CASE EVENT DATE: 20160301
